FAERS Safety Report 16886599 (Version 1)
Quarter: 2019Q4

REPORT INFORMATION
  Report Type: Spontaneous
  Country: US (occurrence: US)
  Receive Date: 20191004
  Receipt Date: 20191004
  Transmission Date: 20200122
  Serious: No
  Sender: FDA-Public Use
  Company Number: US-SA-2019SA272572

PATIENT

DRUGS (1)
  1. ASPERCREME WITH LIDOCAINE FOOT PAIN CREME [Suspect]
     Active Substance: LIDOCAINE HYDROCHLORIDE
     Indication: PAIN IN EXTREMITY

REACTIONS (1)
  - Drug ineffective [Unknown]
